FAERS Safety Report 8519187-4 (Version None)
Quarter: 2012Q3

REPORT INFORMATION
  Report Type: 
  Country: None (occurrence: None)
  Receive Date: 20120718
  Receipt Date: 20120706
  Transmission Date: 20120928
  Serious: Yes (Death)
  Sender: FDA-Public Use
  Company Number: ES-INCYTE CORPORATION-2012IN001255

PATIENT

DRUGS (1)
  1. INC424 [Suspect]
     Dosage: UNK
     Dates: start: 20110501

REACTIONS (1)
  - INFECTION [None]
